FAERS Safety Report 12472949 (Version 2)
Quarter: 2016Q2

REPORT INFORMATION
  Report Type: Other
  Country: IT (occurrence: IT)
  Receive Date: 20160616
  Receipt Date: 20160621
  Transmission Date: 20160815
  Serious: Yes (Hospitalization)
  Sender: FDA-Public Use
  Company Number: IT-APOTEX-2016AP008997

PATIENT
  Age: 33 Year
  Sex: Male

DRUGS (2)
  1. QUETIAPINA DOC GENERICI COMPRESSE RIVESTITE CON FILM [Suspect]
     Active Substance: QUETIAPINE
     Indication: DRUG ABUSE
     Dosage: 27 DF, TOTAL
     Route: 048
     Dates: start: 20160429, end: 20160429
  2. QUETIAPINA DOC GENERICI COMPRESSE RIVESTITE CON FILM [Suspect]
     Active Substance: QUETIAPINE
     Dosage: 2 DF, Q.H.S.
     Route: 048

REACTIONS (7)
  - Slow response to stimuli [Unknown]
  - Overdose [Unknown]
  - Agitation [Recovering/Resolving]
  - Alanine aminotransferase increased [Recovering/Resolving]
  - Patient uncooperative [Unknown]
  - Psychomotor retardation [Recovering/Resolving]
  - Drug abuse [Recovering/Resolving]

NARRATIVE: CASE EVENT DATE: 20160429
